FAERS Safety Report 4325538-7 (Version None)
Quarter: 2004Q1

REPORT INFORMATION
  Report Type: 
  Country: None (occurrence: None)
  Receive Date: 20040324
  Receipt Date: 20040309
  Transmission Date: 20041129
  Serious: Yes (Hospitalization, Other)
  Sender: FDA-Public Use
  Company Number: USA030435513

PATIENT
  Age: 57 Year
  Sex: Female

DRUGS (6)
  1. NPH ILETIN II (PORK) [Suspect]
     Indication: DIABETES MELLITUS
     Dosage: 25 U DAY
  2. REGULAR INSULIN [Suspect]
     Indication: DIABETES MELLITUS
  3. INSULIN [Suspect]
     Indication: DIABETES MELLITUS
  4. HUMULIN N [Suspect]
     Indication: DIABETES MELLITUS
  5. HUMULIN U [Suspect]
     Indication: DIABETES MELLITUS
  6. HUMULIN R [Suspect]
     Indication: DIABETES MELLITUS

REACTIONS (7)
  - ACIDOSIS [None]
  - ARTERIOSCLEROSIS [None]
  - BLOOD GLUCOSE FLUCTUATION [None]
  - DRUG HYPERSENSITIVITY [None]
  - DRUG INEFFECTIVE [None]
  - MEMORY IMPAIRMENT [None]
  - SHOCK HYPOGLYCAEMIC [None]
